FAERS Safety Report 24352001 (Version 1)
Quarter: 2024Q3

REPORT INFORMATION
  Report Type: Report from Study
  Country: PT (occurrence: PT)
  Receive Date: 20240923
  Receipt Date: 20240923
  Transmission Date: 20241016
  Serious: No
  Sender: ROCHE
  Company Number: PT-ROCHE-2986452

PATIENT
  Age: 72 Year
  Sex: Female

DRUGS (37)
  1. HERCEPTIN [Suspect]
     Active Substance: TRASTUZUMAB
     Indication: HER2 positive breast cancer
     Route: 042
     Dates: start: 20170227, end: 20170927
  2. HERCEPTIN [Suspect]
     Active Substance: TRASTUZUMAB
     Route: 042
     Dates: start: 20171108, end: 20180903
  3. HERCEPTIN [Suspect]
     Active Substance: TRASTUZUMAB
     Route: 042
     Dates: start: 20221109
  4. PERJETA [Suspect]
     Active Substance: PERTUZUMAB
     Indication: HER2 positive breast cancer
     Route: 042
     Dates: start: 20170227, end: 20170927
  5. PERJETA [Suspect]
     Active Substance: PERTUZUMAB
     Route: 042
     Dates: start: 20171108, end: 20180813
  6. TAXOTERE [Suspect]
     Active Substance: DOCETAXEL
     Indication: HER2 positive breast cancer
     Route: 042
     Dates: start: 20170227, end: 20170529
  7. ARIMIDEX [Suspect]
     Active Substance: ANASTROZOLE
     Indication: HER2 positive breast cancer
     Route: 048
     Dates: start: 201606, end: 201610
  8. NOLVADEX [Suspect]
     Active Substance: TAMOXIFEN CITRATE
     Indication: HER2 positive breast cancer
     Route: 048
     Dates: start: 20170629, end: 201808
  9. ARCOXIA [Concomitant]
     Active Substance: ETORICOXIB
     Dosage: ONGOING = CHECKED
  10. CALCIUM\VITAMIN D [Concomitant]
     Active Substance: CALCIUM\VITAMIN D
     Dosage: ONGOING = CHECKED
  11. LOPERAMIDE [Concomitant]
     Active Substance: LOPERAMIDE
     Dosage: ONGOING = CHECKED
  12. METOCLOPRAMIDE [Concomitant]
     Active Substance: METOCLOPRAMIDE
     Dosage: ONGOING = CHECKED
  13. NOLOTIL [Concomitant]
     Dosage: ONGOING = CHECKED
  14. ACETAMINOPHEN [Concomitant]
     Active Substance: ACETAMINOPHEN
     Dosage: ONGOING = CHECKED
  15. TRAMADOL [Concomitant]
     Active Substance: TRAMADOL\TRAMADOL HYDROCHLORIDE
     Dosage: ONGOING = CHECKED
  16. BISOPROLOL [Concomitant]
     Active Substance: BISOPROLOL\BISOPROLOL FUMARATE
     Dates: start: 20160615
  17. METFORMIN [Concomitant]
     Active Substance: METFORMIN HYDROCHLORIDE
     Dates: start: 20160615
  18. OMEPRAZOLE [Concomitant]
     Active Substance: OMEPRAZOLE
     Dates: start: 20160615
  19. SIMVASTATIN [Concomitant]
     Active Substance: SIMVASTATIN
     Dates: start: 20160615
  20. ETHYL LOFLAZEPATE [Concomitant]
     Active Substance: ETHYL LOFLAZEPATE
     Dates: start: 20160615
  21. XARELTO [Concomitant]
     Active Substance: RIVAROXABAN
     Dates: start: 20161228
  22. ISONIAZID [Concomitant]
     Active Substance: ISONIAZID
     Dosage: ONGOING = NOT CHECKED
     Dates: start: 20170124, end: 20171010
  23. OFLOXACIN [Concomitant]
     Active Substance: OFLOXACIN
     Indication: Onycholysis
     Dates: start: 20170529
  24. FLUOXETINE [Concomitant]
     Active Substance: FLUOXETINE HYDROCHLORIDE
     Dosage: ONGOING = CHECKED
     Dates: start: 20170926
  25. BACTRIM [Concomitant]
     Active Substance: SULFAMETHOXAZOLE\TRIMETHOPRIM
     Dosage: ONGOING = NOT CHECKED
     Dates: start: 20180215, end: 20180315
  26. VALACYCLOVIR HYDROCHLORIDE [Concomitant]
     Active Substance: VALACYCLOVIR HYDROCHLORIDE
     Dosage: ONGOING = NOT CHECKED
     Dates: start: 20180328, end: 20180418
  27. BILASTINE [Concomitant]
     Active Substance: BILASTINE
     Dosage: ONGOING = CHECKED
     Dates: start: 20180418
  28. MAGNESIUM [Concomitant]
     Active Substance: MAGNESIUM
     Dosage: ONGOING = NOT CHECKED
     Dates: start: 20180220, end: 20180529
  29. POTASSIUM [Concomitant]
     Active Substance: POTASSIUM
     Dosage: ONGOING = NOT CHECKED
     Dates: start: 20180220, end: 20180529
  30. FOSFOMYCIN [Concomitant]
     Active Substance: FOSFOMYCIN
     Dosage: ONGOING = NOT CHECKED
     Dates: start: 20180418, end: 20180419
  31. ZOLEDRONIC ACID [Concomitant]
     Active Substance: ZOLEDRONIC ACID
     Route: 042
     Dates: start: 20170227
  32. FUSIDATE SODIUM [Concomitant]
     Active Substance: FUSIDATE SODIUM
     Indication: Prophylaxis
  33. ZALDIAR [Concomitant]
     Active Substance: ACETAMINOPHEN\TRAMADOL HYDROCHLORIDE
     Indication: Palmar-plantar erythrodysaesthesia syndrome
  34. AMOXICILLIN\CLAVULANIC ACID [Concomitant]
     Active Substance: AMOXICILLIN\CLAVULANIC ACID
     Indication: Urinary tract infection
  35. CODIPRONT (PORTUGAL) [Concomitant]
     Indication: Cough
  36. POLYETHYLENE GLYCOLS [Concomitant]
     Active Substance: POLYETHYLENE GLYCOLS
     Indication: Constipation
  37. ESOMEPRAZOLE [Concomitant]
     Active Substance: ESOMEPRAZOLE
     Indication: Prophylaxis

REACTIONS (1)
  - Ejection fraction decreased [Recovered/Resolved]

NARRATIVE: CASE EVENT DATE: 20171010
